FAERS Safety Report 9820890 (Version 1)
Quarter: 2013Q4

REPORT INFORMATION
  Report Type: Spontaneous
  Country: US (occurrence: None)
  Receive Date: 20131028
  Receipt Date: 20131028
  Transmission Date: 20140711
  Serious: Yes (Other)
  Sender: FDA-Public Use
  Company Number: 2013US001562

PATIENT
  Age: 75 Year
  Sex: Male
  Weight: 73 kg

DRUGS (7)
  1. ATENOLOL (ATENOLOL) TABLET [Concomitant]
  2. ATORVASTATIN (ATORVASTATIN) TABLET [Concomitant]
  3. BENAZEPRIL (BENAZEPRIL) [Concomitant]
  4. LEVOTHYROXINE (LEVOTHYROXINE) [Concomitant]
  5. LASIX (FUROSEMIDE SODIUM) [Concomitant]
  6. NIFEDIPINE (NIFEDIPINE) (NIFEDIPINE) [Concomitant]
  7. ICLUSIG (PONATINIB) TABLET, 45MG [Suspect]
     Indication: CHRONIC MYELOID LEUKAEMIA
     Dosage: 45 MG, QD, ORAL
     Route: 048

REACTIONS (2)
  - Back pain [None]
  - Blood creatinine increased [None]
